FAERS Safety Report 15391618 (Version 2)
Quarter: 2018Q3

REPORT INFORMATION
  Report Type: Spontaneous
  Country: JP (occurrence: JP)
  Receive Date: 20180917
  Receipt Date: 20180924
  Transmission Date: 20181010
  Serious: No
  Sender: FDA-Public Use
  Company Number: JP-009507513-1809JPN001328J

PATIENT
  Age: 69 Year
  Sex: Male

DRUGS (2)
  1. MENESIT TABLETS ? 100 [Suspect]
     Active Substance: CARBIDOPA\LEVODOPA
     Dosage: 400 MG, UNK
     Route: 048
  2. MENESIT TABLETS ? 100 [Suspect]
     Active Substance: CARBIDOPA\LEVODOPA
     Dosage: 100 MG, UNK
     Route: 048

REACTIONS (2)
  - Muscle twitching [Unknown]
  - Blepharospasm [Unknown]
